FAERS Safety Report 4561117-4 (Version None)
Quarter: 2005Q1

REPORT INFORMATION
  Report Type: 
  Country: None (occurrence: None)
  Receive Date: 20050121
  Receipt Date: 20050111
  Transmission Date: 20050727
  Serious: Yes (Death)
  Sender: FDA-Public Use
  Company Number: 2004UW16476

PATIENT
  Age: 31 Year
  Sex: Male

DRUGS (1)
  1. CRESTOR [Suspect]
     Dosage: 10 MG PO
     Route: 048
     Dates: start: 20040301

REACTIONS (3)
  - ABDOMINAL DISCOMFORT [None]
  - ARRHYTHMIA [None]
  - CORONARY ARTERY DISEASE [None]
